FAERS Safety Report 8616408-4 (Version None)
Quarter: 2012Q3

REPORT INFORMATION
  Report Type: 
  Country: None (occurrence: None)
  Receive Date: 20120823
  Receipt Date: 20120810
  Transmission Date: 20120928
  Serious: Yes (Death, Hospitalization)
  Sender: FDA-Public Use
  Company Number: US-JNJFOC-20110902934

PATIENT
  Sex: Female

DRUGS (10)
  1. OMEPRAZOLE [Concomitant]
     Route: 065
  2. TYLENOL [Suspect]
     Indication: JOINT INJURY
     Dosage: TAKEN FOR 2-3 WEEKS OF UNKNOWN AMOUNTS
     Dates: start: 20100601
  3. TYLENOL [Suspect]
     Indication: PYREXIA
     Dosage: TAKEN FOR 2-3 WEEKS OF UNKNOWN AMOUNTS
     Dates: start: 20100601
  4. ADVIL [Suspect]
     Indication: JOINT INJURY
     Route: 048
  5. MELOXICAM [Concomitant]
     Route: 065
  6. KETOROLAC [Concomitant]
     Route: 065
  7. ALL OTHER THERAPEUTIC PRODUCTS [Concomitant]
     Route: 065
  8. TYLENOL [Suspect]
     Indication: PAIN
     Dosage: TAKEN FOR 2-3 WEEKS OF UNKNOWN AMOUNTS
     Dates: start: 20100601
  9. CYCLOBENZAPRINE [Concomitant]
  10. TRAZODONE HYDROCHLORIDE [Concomitant]
     Route: 065

REACTIONS (6)
  - OVERDOSE [None]
  - TOXICITY TO VARIOUS AGENTS [None]
  - ACUTE HEPATIC FAILURE [None]
  - UPPER GASTROINTESTINAL HAEMORRHAGE [None]
  - SUICIDE ATTEMPT [None]
  - RENAL FAILURE ACUTE [None]
